FAERS Safety Report 7543346-0 (Version None)
Quarter: 2011Q2

REPORT INFORMATION
  Report Type: 
  Country: None (occurrence: None)
  Receive Date: 20110613
  Receipt Date: 20110606
  Transmission Date: 20111010
  Serious: Yes (Hospitalization)
  Sender: FDA-Public Use
  Company Number: US-TEVA-280751USA

PATIENT
  Sex: Male

DRUGS (8)
  1. COPAXONE [Suspect]
     Indication: MULTIPLE SCLEROSIS
     Route: 058
  2. NORTRIPTYLINE HYDROCHLORIDE [Concomitant]
  3. BACLOFEN [Concomitant]
  4. PANTOPRAZOLE [Concomitant]
  5. CETIRIZINE HYDROCHLORIDE [Concomitant]
  6. LEVOTHYROXINE SODIUM [Concomitant]
  7. INTERFERON BETA-1A [Concomitant]
  8. CARBAMAZEPINE [Concomitant]

REACTIONS (1)
  - LEUKOPENIA [None]
